FAERS Safety Report 9963872 (Version 1)
Quarter: 2014Q1

REPORT INFORMATION
  Report Type: Report from Study
  Country: US (occurrence: US)
  Receive Date: 20140305
  Receipt Date: 20140305
  Transmission Date: 20141002
  Serious: No
  Sender: FDA-Public Use
  Company Number: US-ABBVIE-13P-163-1117514-00

PATIENT
  Age: 44 Year
  Sex: Male

DRUGS (6)
  1. HUMIRA [Suspect]
     Indication: CROHN^S DISEASE
     Dates: start: 20130707, end: 20130707
  2. HUMIRA [Suspect]
     Dates: start: 20130721
  3. CARVEDILOL [Concomitant]
     Indication: HYPERTENSION
  4. XANAX [Concomitant]
     Indication: ANXIETY
  5. XANAX [Concomitant]
     Indication: PANIC DISORDER
  6. PREDNISONE [Concomitant]
     Indication: CROHN^S DISEASE
     Dosage: 1 TABS, DAILY

REACTIONS (2)
  - Injection site pain [Recovering/Resolving]
  - Injection site pain [Recovered/Resolved]
